FAERS Safety Report 8861219 (Version 1)
Quarter: 2012Q4

REPORT INFORMATION
  Report Type: 
  Country: US (occurrence: US)
  Receive Date: 20121026
  Receipt Date: 20121026
  Transmission Date: 20130627
  Serious: Yes (Hospitalization)
  Sender: FDA-Public Use
  Company Number: US-GENZYME-CLOF-1002362

PATIENT
  Age: 64 Year
  Sex: Female

DRUGS (27)
  1. CLOLAR [Suspect]
     Indication: BONE MARROW CONDITIONING REGIMEN
     Dosage: 30 mg/m2, qd (daily on day-6 through 2)
     Route: 042
     Dates: start: 20120331, end: 20120404
  2. THYMOGLOBULIN [Suspect]
     Indication: BONE MARROW CONDITIONING REGIMEN
     Dosage: UNK
     Route: 065
     Dates: start: 2012
  3. ACYCLOVIR [Concomitant]
     Indication: PRODUCT USED FOR UNKNOWN INDICATION
     Dosage: 400 mg, bid
     Route: 048
  4. ACYCLOVIR [Concomitant]
     Dosage: 400 mg, q12hr
     Route: 048
  5. ATOVAQUONE [Concomitant]
     Indication: PRODUCT USED FOR UNKNOWN INDICATION
     Dosage: 750 mg/5ml (oral suspension)
     Route: 048
  6. ATOVAQUONE [Concomitant]
     Dosage: 1500 mg, qd
     Route: 048
  7. CLONAZEPAM [Concomitant]
     Indication: PRODUCT USED FOR UNKNOWN INDICATION
     Dosage: 0.5 mg, bid
     Route: 048
  8. DALTEPARIN [Concomitant]
     Indication: PRODUCT USED FOR UNKNOWN INDICATION
     Dosage: 9000 U/ml, q12hr
     Route: 058
  9. FLUCONAZOLE [Concomitant]
     Indication: PRODUCT USED FOR UNKNOWN INDICATION
     Dosage: 200 mg, UNK
     Route: 065
  10. FLUCONAZOLE [Concomitant]
     Dosage: 200 mg, qd (Q24 hr)
     Route: 048
  11. LABETALOL [Concomitant]
     Indication: PRODUCT USED FOR UNKNOWN INDICATION
     Dosage: 100 mg, bid
     Route: 048
  12. LACOSAMIDE [Concomitant]
     Indication: PRODUCT USED FOR UNKNOWN INDICATION
     Dosage: 150 mg, bid
     Route: 048
  13. LACTULOSE [Concomitant]
     Indication: PRODUCT USED FOR UNKNOWN INDICATION
     Dosage: 20 g/30 ml, UNK
     Route: 048
  14. LEVETIRACETAM [Concomitant]
     Indication: PRODUCT USED FOR UNKNOWN INDICATION
     Dosage: 1000 mg, UNK
     Route: 065
  15. LEVETIRACETAM [Concomitant]
     Dosage: 1000 mg, qd (at 21:00)
     Route: 048
  16. ZOFRAN [Concomitant]
     Indication: PRODUCT USED FOR UNKNOWN INDICATION
     Dosage: 4 mg, prn
     Route: 065
  17. ZOFRAN [Concomitant]
     Indication: NAUSEA
     Dosage: 12 mg, qd (4mg every Q8hr)
     Route: 048
  18. PAROXETINE [Concomitant]
     Indication: PRODUCT USED FOR UNKNOWN INDICATION
     Dosage: 20 mg, UNK
     Route: 065
  19. PAROXETINE [Concomitant]
     Dosage: 20 mg, qd
     Route: 048
  20. PREDNISONE [Concomitant]
     Indication: PRODUCT USED FOR UNKNOWN INDICATION
     Dosage: 15 mg, qd
     Route: 048
  21. VANCOMYCIN [Concomitant]
     Indication: CLOSTRIDIAL INFECTION
     Dosage: 125 mg, bid
     Route: 048
  22. ALUM-MAG HYDROXIDE-SIMETH [Concomitant]
     Indication: PRODUCT USED FOR UNKNOWN INDICATION
     Dosage: UNK
     Route: 065
  23. DOCUSATE SODIUM [Concomitant]
     Indication: PRODUCT USED FOR UNKNOWN INDICATION
     Dosage: UNK
     Route: 065
  24. DOCUSATE SODIUM [Concomitant]
     Dosage: 100 mg, bid
     Route: 048
  25. SENNOSIDE [Concomitant]
     Indication: PRODUCT USED FOR UNKNOWN INDICATION
     Dosage: UNK
     Route: 065
  26. VANCOMYCIN [Concomitant]
     Indication: PRODUCT USED FOR UNKNOWN INDICATION
     Dosage: 125 mg, bid (oral liquid)
     Route: 048
  27. POLYETHYLENE GLYCOL [Concomitant]
     Indication: PRODUCT USED FOR UNKNOWN INDICATION
     Dosage: 17 g, qd
     Route: 048

REACTIONS (2)
  - Renal impairment [Not Recovered/Not Resolved]
  - Blood calcium increased [Unknown]
